FAERS Safety Report 17746818 (Version 3)
Quarter: 2021Q3

REPORT INFORMATION
  Report Type: Other
  Country: BE (occurrence: BE)
  Receive Date: 20200505
  Receipt Date: 20210803
  Transmission Date: 20211014
  Serious: No
  Sender: FDA-Public Use
  Company Number: BE-ROCHE-2576038

PATIENT
  Age: 47 Year
  Sex: Male
  Weight: 96.6 kg

DRUGS (24)
  1. OCRELIZUMAB. [Suspect]
     Active Substance: OCRELIZUMAB
     Indication: MULTIPLE SCLEROSIS
     Dosage: FORM STRENGTH: 300 MG/250 ML?VISIT 3
     Route: 042
     Dates: start: 20190801, end: 20190801
  2. SOLU?MEDROL [Concomitant]
     Active Substance: METHYLPREDNISOLONE SODIUM SUCCINATE
     Route: 042
     Dates: start: 20200206, end: 20200206
  3. PARACETAMOL [Concomitant]
     Active Substance: ACETAMINOPHEN
     Indication: PREMEDICATION
     Route: 042
     Dates: start: 20190801, end: 20190801
  4. PARACETAMOL [Concomitant]
     Active Substance: ACETAMINOPHEN
     Route: 042
     Dates: start: 20190820, end: 20190820
  5. COVID?19 VACCINE [Concomitant]
     Route: 030
     Dates: start: 20210610, end: 20210610
  6. D?CURE [Concomitant]
     Active Substance: CHOLECALCIFEROL
     Indication: VITAMIN D DEFICIENCY
     Dosage: AMPULE
     Route: 048
  7. RANITIDINE. [Concomitant]
     Active Substance: RANITIDINE
     Indication: PREMEDICATION
     Route: 048
     Dates: start: 20190801, end: 20190801
  8. SOLU?MEDROL [Concomitant]
     Active Substance: METHYLPREDNISOLONE SODIUM SUCCINATE
     Route: 042
     Dates: start: 20200806, end: 20200806
  9. PARACETAMOL [Concomitant]
     Active Substance: ACETAMINOPHEN
     Route: 042
     Dates: start: 20200806, end: 20200806
  10. RANITIDINE. [Concomitant]
     Active Substance: RANITIDINE
     Route: 048
     Dates: start: 20200206, end: 20200206
  11. CETRIZINE [Concomitant]
     Active Substance: CETIRIZINE HYDROCHLORIDE
     Indication: PREMEDICATION
     Route: 048
     Dates: start: 20190801, end: 20190801
  12. OCRELIZUMAB. [Suspect]
     Active Substance: OCRELIZUMAB
     Dosage: FORM STRENGTH: 600MG/500ML?VISIT 4
     Route: 042
     Dates: start: 20200206, end: 20200206
  13. OCRELIZUMAB. [Suspect]
     Active Substance: OCRELIZUMAB
     Dosage: FORM STRENGTH: 600MG/500ML?VISIT 4
     Route: 042
     Dates: start: 20200806, end: 20200806
  14. CETRIZINE [Concomitant]
     Active Substance: CETIRIZINE HYDROCHLORIDE
     Route: 048
     Dates: start: 20200206, end: 20200206
  15. SOLU?MEDROL [Concomitant]
     Active Substance: METHYLPREDNISOLONE SODIUM SUCCINATE
     Indication: PREMEDICATION
     Route: 042
     Dates: start: 20190801, end: 20190801
  16. FAMPYRA [Concomitant]
     Active Substance: DALFAMPRIDINE
     Route: 048
     Dates: start: 20210201, end: 20210201
  17. COVID?19 VACCINE [Concomitant]
     Route: 030
     Dates: start: 20210506, end: 20210506
  18. CETRIZINE [Concomitant]
     Active Substance: CETIRIZINE HYDROCHLORIDE
     Route: 048
     Dates: start: 20190820, end: 20190820
  19. PARACETAMOL [Concomitant]
     Active Substance: ACETAMINOPHEN
     Route: 042
     Dates: start: 20200206, end: 20200206
  20. CITALOPRAM [Concomitant]
     Active Substance: CITALOPRAM HYDROBROMIDE
     Indication: ANXIETY
     Route: 048
  21. RANITIDINE. [Concomitant]
     Active Substance: RANITIDINE
     Route: 048
     Dates: start: 20190820, end: 20190820
  22. CETRIZINE [Concomitant]
     Active Substance: CETIRIZINE HYDROCHLORIDE
     Route: 048
     Dates: start: 20200806, end: 20200806
  23. SOLU?MEDROL [Concomitant]
     Active Substance: METHYLPREDNISOLONE SODIUM SUCCINATE
     Route: 042
     Dates: start: 20190820, end: 20190820
  24. OCRELIZUMAB. [Suspect]
     Active Substance: OCRELIZUMAB
     Dosage: FORM STRENGTH: 300 MG/250 ML?VISIT 2
     Route: 042
     Dates: start: 20190820, end: 20190820

REACTIONS (2)
  - Herpes zoster [Recovered/Resolved]
  - Lymphopenia [Not Recovered/Not Resolved]

NARRATIVE: CASE EVENT DATE: 201912
